FAERS Safety Report 9049188 (Version 1)
Quarter: 2013Q1

REPORT INFORMATION
  Report Type: Spontaneous
  Country: US (occurrence: None)
  Receive Date: 20130130
  Receipt Date: 20130130
  Transmission Date: 20140127
  Serious: No
  Sender: FDA-Public Use
  Company Number: None

PATIENT
  Age: 29 Year
  Sex: Female
  Weight: 47.63 kg

DRUGS (1)
  1. METOCLOPRAMIDE [Suspect]
     Route: 048
     Dates: start: 20130113, end: 20130114

REACTIONS (3)
  - Tardive dyskinesia [None]
  - Lethargy [None]
  - Musculoskeletal stiffness [None]
